FAERS Safety Report 14991589 (Version 1)
Quarter: 2018Q2

REPORT INFORMATION
  Report Type: Spontaneous
  Country: JP (occurrence: JP)
  Receive Date: 20180608
  Receipt Date: 20180608
  Transmission Date: 20180711
  Serious: Yes (Hospitalization)
  Sender: FDA-Public Use
  Company Number: JP-ALLERGAN-1828912US

PATIENT
  Age: 8 Decade
  Sex: Female

DRUGS (4)
  1. MEMANTINE HCL - BP [Suspect]
     Active Substance: MEMANTINE
     Indication: DEMENTIA ALZHEIMER^S TYPE
     Dosage: 10 MG, QD
     Route: 048
  2. MEMANTINE HCL - BP [Suspect]
     Active Substance: MEMANTINE
     Dosage: 15 MG, QD
     Route: 048
  3. MEMANTINE HCL - BP [Suspect]
     Active Substance: MEMANTINE
     Dosage: 10 MG, QD
  4. MEMANTINE HCL - BP [Suspect]
     Active Substance: MEMANTINE
     Dosage: 20 MG, QD
     Route: 048

REACTIONS (3)
  - Fall [Recovered/Resolved]
  - Dizziness [Recovered/Resolved]
  - Fracture [Recovered/Resolved]

NARRATIVE: CASE EVENT DATE: 201803
